FAERS Safety Report 26095676 (Version 2)
Quarter: 2025Q4

REPORT INFORMATION
  Report Type: Spontaneous
  Country: US (occurrence: US)
  Receive Date: 20251127
  Receipt Date: 20251231
  Transmission Date: 20260118
  Serious: No
  Sender: LEO PHARM
  Company Number: US-LEO Pharma-384415

PATIENT
  Age: 56 Year
  Sex: Female

DRUGS (2)
  1. ADBRY [Suspect]
     Active Substance: TRALOKINUMAB-LDRM
     Indication: Dermatitis atopic
     Dosage: TREATMENTS ONGOING??TITRATION DOSING: 300 MG/2 ML, INJECT 2 PENS UNDER THE SKIN ON DAY 1- 10/10/25,
     Route: 058
     Dates: start: 20251010, end: 20251121
  2. ADBRY [Suspect]
     Active Substance: TRALOKINUMAB-LDRM
     Indication: Dermatitis atopic
     Dosage: TREATMENTS ONGOING??TITRATION DOSING: 300 MG/2 ML, INJECT 2 PENS UNDER THE SKIN ON DAY 1- 10/10/25,
     Route: 058

REACTIONS (3)
  - Peripheral swelling [Recovered/Resolved]
  - Eye pruritus [Recovering/Resolving]
  - Eye irritation [Recovered/Resolved]
